FAERS Safety Report 10949124 (Version 1)
Quarter: 2015Q1

REPORT INFORMATION
  Report Type: Spontaneous
  Country: US (occurrence: None)
  Receive Date: 20150323
  Receipt Date: 20150323
  Transmission Date: 20150721
  Serious: Yes (Disabling, Other)
  Sender: FDA-Public Use
  Company Number: None

PATIENT
  Age: 9 Year
  Sex: Male
  Weight: 34.47 kg

DRUGS (1)
  1. TAMIFLU [Suspect]
     Active Substance: OSELTAMIVIR PHOSPHATE
     Indication: INFLUENZA
     Dosage: 10, TWICE DAILY, ORAL
     Route: 048
     Dates: start: 20150316, end: 20150319

REACTIONS (3)
  - Abasia [None]
  - Pain in extremity [None]
  - Hallucination [None]

NARRATIVE: CASE EVENT DATE: 20150320
